FAERS Safety Report 9412997 (Version 2)
Quarter: 2013Q3

REPORT INFORMATION
  Report Type: Spontaneous
  Country: US (occurrence: US)
  Receive Date: 20130722
  Receipt Date: 20130913
  Transmission Date: 20140515
  Serious: Yes (Other)
  Sender: FDA-Public Use
  Company Number: US-VIIV HEALTHCARE LIMITED-A1029109A

PATIENT
  Age: 13 Year
  Sex: Male

DRUGS (6)
  1. ABACAVIR [Suspect]
     Indication: HIV INFECTION
     Dosage: 300MG TWICE PER DAY
     Route: 048
     Dates: start: 20121110, end: 20130603
  2. NEVIRAPINE [Suspect]
     Indication: HIV INFECTION
     Dosage: 200MG TWICE PER DAY
     Route: 048
     Dates: start: 20040416, end: 20130531
  3. LAMIVUDINE-HIV [Concomitant]
     Indication: HIV INFECTION
     Dosage: 150MG TWICE PER DAY
     Route: 048
     Dates: start: 20040330, end: 20130603
  4. GUANFACINE [Concomitant]
     Indication: ATTENTION DEFICIT/HYPERACTIVITY DISORDER
     Dosage: 2MG TWICE PER DAY
     Route: 048
  5. BUPROPION [Concomitant]
     Indication: DEPRESSION
     Dosage: 300MG UNKNOWN
     Route: 048
  6. AMPHETAMINE + DEXTROAMPHETAMINE [Concomitant]
     Indication: ATTENTION DEFICIT/HYPERACTIVITY DISORDER
     Dosage: 15MG TWICE PER DAY
     Route: 048

REACTIONS (3)
  - Hepatitis acute [Recovered/Resolved]
  - Liver function test abnormal [Recovered/Resolved]
  - International normalised ratio increased [Recovered/Resolved]
